FAERS Safety Report 15296322 (Version 1)
Quarter: 2018Q3

REPORT INFORMATION
  Report Type: Spontaneous
  Country: US (occurrence: US)
  Receive Date: 20180820
  Receipt Date: 20180820
  Transmission Date: 20181010
  Serious: Yes (Other)
  Sender: FDA-Public Use
  Company Number: US-PFIZER INC-2018330923

PATIENT
  Sex: Female

DRUGS (3)
  1. GABAPENTIN. [Suspect]
     Active Substance: GABAPENTIN
     Dosage: THEN FOR 2 WEEKS SHE TOOK 300MG
     Dates: end: 20180409
  2. GABAPENTIN. [Suspect]
     Active Substance: GABAPENTIN
     Dosage: FOR 2 WEEKS SHE TOOK 100MG
  3. GABAPENTIN. [Suspect]
     Active Substance: GABAPENTIN
     Dosage: THEN FOR 2 WEEKS SHE TOOK 200MG

REACTIONS (1)
  - Diverticulitis [Unknown]

NARRATIVE: CASE EVENT DATE: 20180531
